FAERS Safety Report 5014154-X (Version None)
Quarter: 2006Q2

REPORT INFORMATION
  Report Type: 
  Country: None (occurrence: None)
  Receive Date: 20060414
  Receipt Date: 20060203
  Transmission Date: 20061013
  Serious: No
  Sender: FDA-Public Use
  Company Number: 2006SP000612

PATIENT
  Age: 70 Year
  Sex: Female
  Weight: 71.6683 kg

DRUGS (10)
  1. LUNESTA [Suspect]
     Indication: INSOMNIA
     Dosage: SEE IMAGE
     Route: 048
     Dates: start: 20060101, end: 20060101
  2. LUNESTA [Suspect]
     Indication: INSOMNIA
     Dosage: SEE IMAGE
     Route: 048
     Dates: start: 20060201
  3. POTASSIUM [Concomitant]
  4. HYZAAR [Concomitant]
  5. PLAVIX [Concomitant]
  6. FUROSEMIDE [Concomitant]
  7. AMLODIPINE BESYLATE [Concomitant]
  8. SIMVASTATIN [Concomitant]
  9. CELEBREX [Concomitant]
  10. PACLITAXEL [Concomitant]

REACTIONS (1)
  - SOMNOLENCE [None]
